FAERS Safety Report 6865564-7 (Version None)
Quarter: 2010Q3

REPORT INFORMATION
  Report Type: 
  Country: None (occurrence: None)
  Receive Date: 20100721
  Receipt Date: 20080424
  Transmission Date: 20110219
  Serious: No
  Sender: FDA-Public Use
  Company Number: US-PFIZER INC-2008037573

PATIENT
  Sex: Female
  Weight: 63.6 kg

DRUGS (4)
  1. CHANTIX [Suspect]
     Indication: SMOKING CESSATION THERAPY
     Dates: start: 20080401
  2. CLARINEX [Concomitant]
  3. PROZAC [Concomitant]
  4. MUSCLE RELAXANTS [Concomitant]

REACTIONS (2)
  - DEPRESSION [None]
  - FEELING ABNORMAL [None]
